FAERS Safety Report 16168977 (Version 1)
Quarter: 2019Q2

REPORT INFORMATION
  Report Type: Spontaneous
  Country: US (occurrence: US)
  Receive Date: 20190405
  Receipt Date: 20190405
  Transmission Date: 20190711
  Serious: Yes (Other)
  Sender: FDA-Public Use
  Company Number: None

PATIENT
  Age: 48 Year
  Sex: Female
  Weight: 85.5 kg

DRUGS (4)
  1. BUPRENORPHINE (GENERIC FOR BUTRANS) TRANSDERMAL PAIN PATCH, RHODES [Suspect]
     Active Substance: BUPRENORPHINE
     Indication: PAIN
     Dosage: ?          QUANTITY:1 PATCH(ES);OTHER FREQUENCY:EVERY 7 DAYS;?
     Route: 062
     Dates: start: 20181201, end: 20190405
  2. TIZANIDINE. [Concomitant]
     Active Substance: TIZANIDINE
  3. OXYCODONE [Concomitant]
     Active Substance: OXYCODONE
  4. CYMBALTA [Concomitant]
     Active Substance: DULOXETINE HYDROCHLORIDE

REACTIONS (2)
  - Incorrect dose administered by device [None]
  - Product adhesion issue [None]

NARRATIVE: CASE EVENT DATE: 20190301
